FAERS Safety Report 8624815-9 (Version None)
Quarter: 2012Q3

REPORT INFORMATION
  Report Type: 
  Country: None (occurrence: None)
  Receive Date: 20120827
  Receipt Date: 20120816
  Transmission Date: 20120928
  Serious: Yes (Hospitalization, Other)
  Sender: FDA-Public Use
  Company Number: US-009507513-1109USA01761

PATIENT

DRUGS (6)
  1. FOSAMAX [Suspect]
     Indication: OSTEOPOROSIS
     Dosage: 70 MG, UNK
     Route: 048
     Dates: start: 20021201
  2. FOSAMAX [Suspect]
     Route: 048
  3. LOMOTIL [Concomitant]
     Indication: DIARRHOEA
  4. RALOXIFENE HYDROCHLORIDE [Concomitant]
     Indication: OSTEOPOROSIS
     Dosage: 60 MG, UNK
  5. FOSAMAX PLUS D [Suspect]
     Dosage: 70MG-5600
     Route: 048
  6. FORTEO [Concomitant]
     Indication: OSTEOPOROSIS

REACTIONS (62)
  - HERNIA [None]
  - SUTURE RUPTURE [None]
  - SPINAL OSTEOARTHRITIS [None]
  - BURSITIS [None]
  - HIATUS HERNIA [None]
  - ANGIOMYOLIPOMA [None]
  - NEPHROLITHIASIS [None]
  - DEHYDRATION [None]
  - HYPERTHYROIDISM [None]
  - INGUINAL HERNIA [None]
  - IMPAIRED HEALING [None]
  - FRACTURED SACRUM [None]
  - LIMB INJURY [None]
  - UPPER-AIRWAY COUGH SYNDROME [None]
  - DRUG INTERACTION [None]
  - RENAL FAILURE [None]
  - RENAL FAILURE CHRONIC [None]
  - INTESTINAL ADHESION LYSIS [None]
  - LOW TURNOVER OSTEOPATHY [None]
  - BIOPSY BREAST [None]
  - COUGH [None]
  - HYPERCALCAEMIA [None]
  - SKELETAL INJURY [None]
  - ABDOMINAL PAIN [None]
  - ELBOW OPERATION [None]
  - DECREASED APPETITE [None]
  - SCOLIOSIS [None]
  - BODY HEIGHT DECREASED [None]
  - ATROPHIC VULVOVAGINITIS [None]
  - HAEMORRHOIDS [None]
  - ENCHONDROMA [None]
  - DYSPHAGIA [None]
  - BACK PAIN [None]
  - MUSCLE SPASMS [None]
  - MALIGNANT MELANOMA [None]
  - TOOTH DISORDER [None]
  - SINUSITIS [None]
  - OSTEOARTHRITIS [None]
  - DEVICE FAILURE [None]
  - CHILLS [None]
  - GAIT DISTURBANCE [None]
  - GASTRITIS EROSIVE [None]
  - WHITE BLOOD CELL COUNT INCREASED [None]
  - GASTROENTERITIS [None]
  - BLOOD CREATININE INCREASED [None]
  - GASTRITIS [None]
  - ABDOMINAL HERNIA [None]
  - DRUG INEFFECTIVE [None]
  - VAGINAL PROLAPSE [None]
  - COLITIS [None]
  - BLOOD PARATHYROID HORMONE ABNORMAL [None]
  - NAUSEA [None]
  - GASTROINTESTINAL SURGERY [None]
  - NASAL SEPTUM DEVIATION [None]
  - FEMUR FRACTURE [None]
  - HERNIA OBSTRUCTIVE [None]
  - INCISION SITE HAEMORRHAGE [None]
  - INTESTINAL STENOSIS [None]
  - VITAMIN D DEFICIENCY [None]
  - VULVOVAGINAL BURNING SENSATION [None]
  - VULVOVAGINAL DRYNESS [None]
  - VOMITING [None]
